FAERS Safety Report 10892577 (Version 1)
Quarter: 2015Q1

REPORT INFORMATION
  Report Type: Spontaneous
  Country: US (occurrence: US)
  Receive Date: 20150306
  Receipt Date: 20150306
  Transmission Date: 20150721
  Serious: Yes (Other)
  Sender: FDA-Public Use
  Company Number: PHEH2015US001839

PATIENT
  Age: 67 Year
  Sex: Male
  Weight: 84 kg

DRUGS (12)
  1. NILOTINIB [Concomitant]
     Active Substance: NILOTINIB
     Indication: CHRONIC LYMPHOCYTIC LEUKAEMIA
     Dosage: 420 MG, QD
     Route: 048
  2. TOBI [Suspect]
     Active Substance: TOBRAMYCIN
     Dosage: UNK
     Route: 055
  3. IBRUTINIB [Concomitant]
     Active Substance: IBRUTINIB
     Indication: PRODUCT USED FOR UNKNOWN INDICATION
     Route: 065
  4. ACYCLOVIR. [Concomitant]
     Active Substance: ACYCLOVIR
     Indication: PROPHYLAXIS
     Dosage: 1 DF, QD
     Route: 048
     Dates: start: 20140514
  5. NAPROXEN. [Concomitant]
     Active Substance: NAPROXEN
     Indication: ROAD TRAFFIC ACCIDENT
     Dosage: 550 MG, QD
     Route: 048
     Dates: start: 20140123, end: 20140128
  6. BALUNA [Concomitant]
     Indication: PRODUCT USED FOR UNKNOWN INDICATION
     Dosage: 1 DF, Q8H
     Route: 061
  7. OMEPRAZOLE. [Concomitant]
     Active Substance: OMEPRAZOLE
     Indication: GASTROOESOPHAGEAL REFLUX DISEASE
     Dosage: 20 MG, QD
     Route: 048
  8. FLUXONIL [Concomitant]
     Indication: ROAD TRAFFIC ACCIDENT
     Dosage: 10 MG, QD
     Route: 048
     Dates: start: 20140123, end: 20140128
  9. FERROUS SULFATE [Concomitant]
     Active Substance: FERROUS SULFATE\FERROUS SULFATE, DRIED
     Indication: IRON DEFICIENCY
     Dosage: 325 MG, QD
     Route: 048
  10. TOBI [Suspect]
     Active Substance: TOBRAMYCIN
     Indication: BRONCHIECTASIS
     Dosage: 300 MG, Q12H
     Route: 055
     Dates: start: 20150101, end: 20150225
  11. AVODART [Concomitant]
     Active Substance: DUTASTERIDE
     Indication: BENIGN PROSTATIC HYPERPLASIA
     Dosage: 1 DF, QD
     Route: 048
  12. IMMUNOGLOBULIN I.V [Concomitant]
     Active Substance: HUMAN IMMUNOGLOBULIN G
     Indication: HYPERGAMMAGLOBULINAEMIA
     Dosage: UNK
     Route: 042

REACTIONS (2)
  - Wrong technique in drug usage process [Unknown]
  - Incorrect dose administered [Recovered/Resolved]

NARRATIVE: CASE EVENT DATE: 20150121
